FAERS Safety Report 7376396-8 (Version None)
Quarter: 2011Q1

REPORT INFORMATION
  Report Type: 
  Country: None (occurrence: None)
  Receive Date: 20110317
  Receipt Date: 20110307
  Transmission Date: 20110831
  Serious: Yes (Hospitalization)
  Sender: FDA-Public Use
  Company Number: ABR_00027_2011

PATIENT
  Age: 48 Year
  Sex: Male

DRUGS (7)
  1. NYSTATIN [Suspect]
     Indication: PRODUCT USED FOR UNKNOWN INDICATION
     Dosage: (DF)
     Dates: start: 20100502
  2. PANTOPRAZOLE [Suspect]
     Indication: PRODUCT USED FOR UNKNOWN INDICATION
     Dosage: (DF)
     Dates: start: 20100502
  3. ERYTHROMYCIN [Suspect]
     Indication: PRODUCT USED FOR UNKNOWN INDICATION
     Dosage: (DF)
     Dates: start: 20100502
  4. ROSUVASTATIN CALCIUM [Suspect]
     Indication: PRODUCT USED FOR UNKNOWN INDICATION
     Dosage: ((10 MG,1 OM 1 D))
  5. FENOFIBRATE [Suspect]
     Indication: XANTHOMATOSIS
     Dosage: (1 DOSAGE FORMS, 1 IN 1 D))
  6. ACETAMINOPHEN [Suspect]
     Indication: PRODUCT USED FOR UNKNOWN INDICATION
     Dosage: (DF)
     Dates: start: 20100502
  7. MEROPENEM [Suspect]
     Indication: PRODUCT USED FOR UNKNOWN INDICATION
     Dosage: (DF)
     Dates: start: 20100502

REACTIONS (5)
  - SEPSIS [None]
  - RHABDOMYOLYSIS [None]
  - HYPERTRIGLYCERIDAEMIA [None]
  - RENAL FAILURE [None]
  - PANCREATITIS [None]
